FAERS Safety Report 4624850-1 (Version None)
Quarter: 2005Q2

REPORT INFORMATION
  Report Type: 
  Country: None (occurrence: None)
  Receive Date: 20050325
  Receipt Date: 20050106
  Transmission Date: 20051028
  Serious: No
  Sender: FDA-Public Use
  Company Number: USA050187597

PATIENT
  Age: 63 Year
  Sex: Female
  Weight: 73 kg

DRUGS (5)
  1. FORTEO [Suspect]
     Indication: BONE DISORDER
     Dates: start: 20041101
  2. CORAL CALCIUM [Concomitant]
  3. HUMIRA [Concomitant]
  4. ASCORBIC ACID [Concomitant]
  5. FLAX SEED OIL [Concomitant]

REACTIONS (2)
  - HEART RATE INCREASED [None]
  - RENAL PAIN [None]
